FAERS Safety Report 8794614 (Version 3)
Quarter: 2013Q1

REPORT INFORMATION
  Report Type: Spontaneous
  Country: TW (occurrence: TW)
  Receive Date: 20120917
  Receipt Date: 20130131
  Transmission Date: 20140127
  Serious: Yes (Other)
  Sender: FDA-Public Use
  Company Number: TW-ABBOTT-12P-153-0979911-00

PATIENT
  Age: 55 None
  Sex: Female
  Weight: 40 kg

DRUGS (1)
  1. HUMIRA [Suspect]
     Indication: RHEUMATOID ARTHRITIS
     Route: 058
     Dates: start: 20120131, end: 20120327

REACTIONS (14)
  - Ascites [Unknown]
  - Peritoneal tuberculosis [Unknown]
  - Asthenia [Unknown]
  - Hepatic cirrhosis [Unknown]
  - Portal hypertension [Unknown]
  - Hepatic neoplasm [Unknown]
  - Peritoneal disorder [Unknown]
  - Leiomyoma [Unknown]
  - Pleural effusion [Unknown]
  - Pneumothorax [Unknown]
  - Cough [Unknown]
  - Chest pain [Unknown]
  - Lung infiltration [Unknown]
  - Deformity thorax [Unknown]
